FAERS Safety Report 11890866 (Version 2)
Quarter: 2016Q2

REPORT INFORMATION
  Report Type: Report from Study
  Country: KR (occurrence: KR)
  Receive Date: 20160106
  Receipt Date: 20160425
  Transmission Date: 20160815
  Serious: Yes (Death, Hospitalization)
  Sender: FDA-Public Use
  Company Number: KR-ROCHE-1063111

PATIENT
  Age: 78 Year
  Sex: Female
  Weight: 68 kg

DRUGS (69)
  1. PREDNISONE. [Suspect]
     Active Substance: PREDNISONE
     Indication: DIFFUSE LARGE B-CELL LYMPHOMA
     Dosage: LAST DOSE PRIOR TO SAE: 100 MG ON 16/APR/2012
     Route: 048
     Dates: start: 20120111
  2. FERROUS SULFATE ANHYDROUS. [Concomitant]
     Active Substance: FERROUS SULFATE ANHYDROUS
     Indication: ANAEMIA
     Route: 065
     Dates: end: 20120425
  3. BENZYDAMINE HCL [Concomitant]
     Route: 065
     Dates: start: 20120208, end: 20120424
  4. ACETAMINOPHEN. [Concomitant]
     Active Substance: ACETAMINOPHEN
     Route: 065
     Dates: start: 20120111, end: 20120412
  5. POTASSIUM CHLORIDE. [Concomitant]
     Active Substance: POTASSIUM CHLORIDE
     Indication: HYPOKALAEMIA
     Route: 065
     Dates: start: 20120329, end: 20120330
  6. AMLODIPINE BESYLATE. [Concomitant]
     Active Substance: AMLODIPINE BESYLATE
     Indication: HYPERTENSION
     Route: 065
     Dates: start: 20120417, end: 20120423
  7. HYDROCORTISONE SUCCINATE [Concomitant]
     Indication: DYSPNOEA
     Route: 065
     Dates: start: 20120424, end: 20120429
  8. NOREPINEPHRINE [Concomitant]
     Active Substance: NOREPINEPHRINE\NOREPINEPHRINE BITARTRATE
     Indication: HYPOTENSION
     Route: 065
     Dates: start: 20120429, end: 20120505
  9. DEXRAZOXANE. [Concomitant]
     Active Substance: DEXRAZOXANE
     Route: 065
     Dates: start: 20120111, end: 20120412
  10. APREPITANT. [Concomitant]
     Active Substance: APREPITANT
     Route: 065
     Dates: start: 20120111, end: 20120414
  11. RAMOSETRON [Concomitant]
     Active Substance: RAMOSETRON HYDROCHLORIDE
     Route: 065
     Dates: start: 20120111, end: 20120412
  12. MEGESTROL ACETATE. [Concomitant]
     Active Substance: MEGESTROL ACETATE
     Indication: DECREASED APPETITE
     Route: 065
     Dates: start: 20120119, end: 20120425
  13. AMIKACIN SULFATE. [Concomitant]
     Active Substance: AMIKACIN SULFATE
     Route: 065
     Dates: start: 20120323, end: 20120331
  14. PROPACETAMOL HCL [Concomitant]
     Indication: FEBRILE NEUTROPENIA
     Route: 065
     Dates: start: 20120323, end: 20120329
  15. DEXPANTHENOL. [Concomitant]
     Active Substance: DEXPANTHENOL
     Indication: DECREASED APPETITE
     Route: 065
     Dates: start: 20120323, end: 20120426
  16. NICOTINAMIDE [Concomitant]
     Active Substance: NIACINAMIDE
     Indication: DECREASED APPETITE
     Route: 065
     Dates: start: 20120323, end: 20120426
  17. ACETAMINOPHEN. [Concomitant]
     Active Substance: ACETAMINOPHEN
     Route: 065
     Dates: start: 20120330, end: 20120401
  18. DIOCTAHEDRAL SMECTITE [Concomitant]
     Indication: DIARRHOEA
     Route: 065
     Dates: start: 20120330, end: 20120401
  19. RANITIDINE HCL [Concomitant]
     Active Substance: RANITIDINE HYDROCHLORIDE
     Indication: GASTRIC ULCER
     Route: 065
     Dates: start: 20120424, end: 20120427
  20. DEXAMETHASONE. [Concomitant]
     Active Substance: DEXAMETHASONE
     Indication: PULMONARY OEDEMA
     Route: 065
     Dates: start: 20120424, end: 20120425
  21. LACTULOSE. [Concomitant]
     Active Substance: LACTULOSE
     Indication: CONSTIPATION
     Route: 065
     Dates: start: 20120429, end: 20120509
  22. METOCLOPRAMIDE HCL [Concomitant]
     Active Substance: METOCLOPRAMIDE HYDROCHLORIDE
     Indication: VOMITING
     Route: 065
     Dates: start: 20120503, end: 20120504
  23. VINCRISTINE [Suspect]
     Active Substance: VINCRISTINE
     Indication: DIFFUSE LARGE B-CELL LYMPHOMA
     Dosage: LAST DOSE PRIOR TO SAE: 2 MG ON 12/APR/2012
     Route: 050
     Dates: start: 20120111
  24. CHLORPHENIRAMINE MALEATE. [Concomitant]
     Active Substance: CHLORPHENIRAMINE MALEATE
     Route: 065
     Dates: start: 20120111, end: 20120412
  25. ASCORBIC ACID. [Concomitant]
     Active Substance: ASCORBIC ACID
     Indication: DECREASED APPETITE
     Route: 065
     Dates: start: 20120323, end: 20120426
  26. TRANEXAMIC ACID. [Concomitant]
     Active Substance: TRANEXAMIC ACID
     Indication: ANAEMIA
     Route: 065
     Dates: start: 20120426, end: 20120429
  27. MAGNESIUM SULFATE. [Concomitant]
     Active Substance: MAGNESIUM SULFATE
     Indication: HYPOMAGNESAEMIA
     Route: 065
     Dates: start: 20120511, end: 20120511
  28. VASOPRESINA [Concomitant]
     Indication: HAEMORRHAGE
     Route: 065
     Dates: start: 20120519, end: 20120520
  29. PYRIDOXINE [Concomitant]
     Active Substance: PYRIDOXINE
     Indication: DECREASED APPETITE
     Route: 065
     Dates: start: 20120323, end: 20120426
  30. ACETAMINOPHEN. [Concomitant]
     Active Substance: ACETAMINOPHEN
     Indication: PYREXIA
     Route: 065
     Dates: start: 20120326, end: 20120327
  31. HEPARIN [Concomitant]
     Active Substance: HEPARIN SODIUM
     Route: 065
     Dates: start: 20120404, end: 20120404
  32. MAGNESIUM SULFATE. [Concomitant]
     Active Substance: MAGNESIUM SULFATE
     Indication: HYPOMAGNESAEMIA
     Route: 065
     Dates: start: 20120424, end: 20120424
  33. FENTANYL CITRATE. [Concomitant]
     Active Substance: FENTANYL CITRATE
     Route: 065
     Dates: start: 20120425, end: 20120425
  34. OFLOXACIN. [Concomitant]
     Active Substance: OFLOXACIN
     Route: 065
     Dates: start: 20120514, end: 20120514
  35. PREDNISOLONE ACETATE. [Concomitant]
     Active Substance: PREDNISOLONE ACETATE
     Indication: PULMONARY OEDEMA
     Route: 065
     Dates: start: 20120515, end: 20120519
  36. OBINUTUZUMAB [Suspect]
     Active Substance: OBINUTUZUMAB
     Indication: DIFFUSE LARGE B-CELL LYMPHOMA
     Dosage: DATE OF MOST RECENT DOSE 12/APR/2012, VOLUME: 250 ML AT A CONCENTRATION OF 4 MG/ML.
     Route: 042
     Dates: start: 20120111
  37. RABEPRAZOLE [Concomitant]
     Active Substance: RABEPRAZOLE
     Indication: ABDOMINAL PAIN UPPER
     Route: 065
     Dates: end: 20120416
  38. CIPROFLOXACIN. [Concomitant]
     Active Substance: CIPROFLOXACIN
     Route: 065
     Dates: end: 20120519
  39. FLUCONAZOLE. [Concomitant]
     Active Substance: FLUCONAZOLE
     Route: 065
     Dates: end: 20120424
  40. FUROSEMIDE. [Concomitant]
     Active Substance: FUROSEMIDE
     Indication: GENERALISED OEDEMA
     Route: 065
     Dates: start: 20120322, end: 20120401
  41. SULFAMETHOXAZOLE ET TRIMETHOPRIME [Concomitant]
     Active Substance: SULFAMETHOXAZOLE\TRIMETHOPRIM
     Route: 065
     Dates: start: 20120404, end: 20120425
  42. DARBEPOETIN ALFA [Concomitant]
     Active Substance: DARBEPOETIN ALFA
     Indication: ANAEMIA
     Route: 065
     Dates: start: 20120419, end: 20120419
  43. IPRATROPIUM BROMIDE. [Concomitant]
     Active Substance: IPRATROPIUM BROMIDE
     Indication: DYSPNOEA
     Route: 065
     Dates: start: 20120424, end: 20120425
  44. VECURONIUM [Concomitant]
     Active Substance: VECURONIUM BROMIDE
     Route: 065
     Dates: start: 20120425, end: 20120426
  45. TETRACOSACTRIN [Concomitant]
     Route: 065
     Dates: start: 20120426, end: 20120426
  46. ACETAMINOPHEN. [Concomitant]
     Active Substance: ACETAMINOPHEN
     Route: 065
     Dates: start: 20120409, end: 20120409
  47. PROPIVERINE [Concomitant]
     Active Substance: PROPIVERINE
     Route: 065
     Dates: start: 20120409, end: 20120425
  48. ALBUMIN [Concomitant]
     Active Substance: ALBUMIN HUMAN
     Indication: HYPOALBUMINAEMIA
     Route: 065
     Dates: start: 20120424, end: 20120424
  49. INSULIN [Concomitant]
     Active Substance: INSULIN NOS
     Indication: DIABETES MELLITUS
     Route: 065
     Dates: start: 20120426, end: 20120501
  50. CYCLOPHOSPHAMIDE. [Suspect]
     Active Substance: CYCLOPHOSPHAMIDE
     Indication: DIFFUSE LARGE B-CELL LYMPHOMA
     Dosage: LAST DOSE PRIOR TO SAE: 888.75 MG ON 12/APR/2012
     Route: 042
     Dates: start: 20120111
  51. DOXORUBICIN [Suspect]
     Active Substance: DOXORUBICIN
     Indication: DIFFUSE LARGE B-CELL LYMPHOMA
     Dosage: LAST DOSE PRIOR TO SAE: 79 MG ON 12/APR/2012
     Route: 042
     Dates: start: 20120111
  52. SUCRALFATE SUSPENSION [Concomitant]
     Indication: ABDOMINAL PAIN UPPER
     Route: 065
     Dates: start: 20120309, end: 20120519
  53. PROPACETAMOL HCL [Concomitant]
     Route: 065
     Dates: start: 20120401, end: 20120410
  54. POTASSIUM CHLORIDE. [Concomitant]
     Active Substance: POTASSIUM CHLORIDE
     Indication: HYPOKALAEMIA
     Route: 065
     Dates: start: 20120325, end: 20120325
  55. AMPHOTERICIN B. [Concomitant]
     Active Substance: AMPHOTERICIN B
     Route: 065
     Dates: start: 20120424, end: 20120429
  56. ALFENTANIL HCL [Concomitant]
     Active Substance: ALFENTANIL HYDROCHLORIDE
     Indication: PAIN
     Route: 065
     Dates: start: 20120425, end: 20120508
  57. NOREPINEPHRINE [Concomitant]
     Active Substance: NOREPINEPHRINE\NOREPINEPHRINE BITARTRATE
     Indication: HYPOTENSION
     Route: 065
     Dates: start: 20120426, end: 20120427
  58. CIMETIDINE [Concomitant]
     Active Substance: CIMETIDINE
     Indication: ABDOMINAL PAIN UPPER
     Route: 065
     Dates: start: 20120427, end: 20120519
  59. SPIRONOLACTONE. [Concomitant]
     Active Substance: SPIRONOLACTONE
     Indication: PULMONARY OEDEMA
     Route: 065
     Dates: start: 20120511, end: 20120519
  60. LEVOTHYROXINE. [Concomitant]
     Active Substance: LEVOTHYROXINE
     Indication: HYPOTHYROIDISM
     Route: 065
     Dates: end: 20120519
  61. CEFEPIME DIHYDROCHLORIDE [Concomitant]
     Active Substance: CEFEPIME HYDROCHLORIDE
     Route: 065
     Dates: start: 20120323, end: 20120331
  62. TEICOPLANIN [Concomitant]
     Active Substance: TEICOPLANIN
     Route: 065
     Dates: start: 20120325, end: 20120402
  63. CHLORPHENIRAMINE. [Concomitant]
     Active Substance: CHLORPHENIRAMINE
     Route: 065
     Dates: start: 20120325, end: 20120325
  64. CALCIUM CHLORIDE. [Concomitant]
     Active Substance: CALCIUM CHLORIDE
     Indication: HYPOCALCAEMIA
     Route: 065
     Dates: start: 20120326, end: 20120326
  65. ACETAMINOPHEN. [Concomitant]
     Active Substance: ACETAMINOPHEN
     Route: 065
     Dates: start: 20120401, end: 20120403
  66. TRAMADOL HCL [Concomitant]
     Active Substance: TRAMADOL HYDROCHLORIDE
     Indication: ABDOMINAL PAIN
     Route: 065
     Dates: start: 20120422, end: 20120422
  67. FLUCONAZOLE. [Concomitant]
     Active Substance: FLUCONAZOLE
     Route: 065
     Dates: start: 20120430, end: 20120519
  68. MISOPROSTOL. [Concomitant]
     Active Substance: MISOPROSTOL
     Indication: GASTRIC ULCER
     Route: 065
     Dates: start: 20120515, end: 20120518
  69. NOREPINEPHRINE [Concomitant]
     Active Substance: NOREPINEPHRINE\NOREPINEPHRINE BITARTRATE
     Indication: HYPOTENSION
     Route: 065
     Dates: start: 20120518, end: 20120519

REACTIONS (2)
  - Infection [Fatal]
  - Atrial fibrillation [Not Recovered/Not Resolved]

NARRATIVE: CASE EVENT DATE: 20120423
